FAERS Safety Report 9176453 (Version 1)
Quarter: 2013Q1

REPORT INFORMATION
  Report Type: Spontaneous
  Country: US (occurrence: None)
  Receive Date: 20130320
  Receipt Date: 20130320
  Transmission Date: 20140127
  Serious: No
  Sender: FDA-Public Use
  Company Number: None

PATIENT
  Sex: Female

DRUGS (2)
  1. ESTRADIOL [Suspect]
     Indication: MENOPAUSE
     Dosage: 1 PATCH WKLY SKIN
     Route: 061
     Dates: start: 201302
  2. ESTRADIOL [Suspect]
     Indication: HOT FLUSH
     Dosage: 1 PATCH WKLY SKIN
     Route: 061
     Dates: start: 201302

REACTIONS (1)
  - Application site rash [None]
